FAERS Safety Report 5017799-6 (Version None)
Quarter: 2006Q2

REPORT INFORMATION
  Report Type: 
  Country: None (occurrence: None)
  Receive Date: 20060530
  Receipt Date: 20050323
  Transmission Date: 20061013
  Serious: Yes (Other)
  Sender: FDA-Public Use
  Company Number: 2005049192

PATIENT
  Age: 83 Year
  Sex: Female

DRUGS (7)
  1. LYRICA [Suspect]
     Indication: NEURALGIA
     Dosage: 75 MG, ORAL
     Route: 048
     Dates: start: 20050211
  2. IBUPROFEN [Concomitant]
  3. LANSOPRAZOLE [Concomitant]
  4. LACTULOSE [Concomitant]
  5. PARACETAMOL [Concomitant]
  6. CEPHALEXIN [Concomitant]
  7. DIHYDROCODEINE [Concomitant]

REACTIONS (1)
  - HALLUCINATION, VISUAL [None]
